FAERS Safety Report 5340834-2 (Version None)
Quarter: 2007Q2

REPORT INFORMATION
  Report Type: 
  Country: None (occurrence: None)
  Receive Date: 20070531
  Receipt Date: 20070521
  Transmission Date: 20071010
  Serious: Yes (Other)
  Sender: FDA-Public Use
  Company Number: IT-ABBOTT-07P-083-0369752-00

PATIENT
  Age: 77 Year
  Sex: Male

DRUGS (3)
  1. WARFARIN SODIUM [Suspect]
     Indication: CONGESTIVE CARDIOMYOPATHY
     Dosage: NOT REPORTED
  2. ASPIRIN [Suspect]
     Indication: CONGESTIVE CARDIOMYOPATHY
     Dosage: NOT REPORTED
  3. CLOPIDOGREL [Suspect]
     Indication: CONGESTIVE CARDIOMYOPATHY
     Dosage: NOT REPORTED

REACTIONS (1)
  - ANAEMIA [None]
